FAERS Safety Report 10445178 (Version 4)
Quarter: 2014Q4

REPORT INFORMATION
  Report Type: Report from Study
  Country: FR (occurrence: FR)
  Receive Date: 20140910
  Receipt Date: 20141113
  Transmission Date: 20150528
  Serious: Yes (Hospitalization)
  Sender: FDA-Public Use
  Company Number: FR-GILEAD-2014-0114613

PATIENT
  Age: 50 Year
  Sex: Male
  Weight: 85 kg

DRUGS (4)
  1. SOFOSBUVIR [Suspect]
     Active Substance: SOFOSBUVIR
     Indication: CHRONIC HEPATITIS C
     Dosage: 400 MG, UNK
     Route: 048
     Dates: start: 20140516, end: 20140527
  2. DACLATASVIR [Suspect]
     Active Substance: DACLATASVIR
     Indication: CHRONIC HEPATITIS C
     Dosage: 60 MG, UNK
     Route: 048
     Dates: start: 20140516, end: 20140527
  3. TEGELINE [Interacting]
     Active Substance: HUMAN IMMUNOGLOBULIN G
     Indication: MYALGIA
     Dosage: UNK
     Route: 065
     Dates: start: 201406
  4. TEGELINE [Interacting]
     Active Substance: HUMAN IMMUNOGLOBULIN G
     Indication: NEURALGIA
     Dosage: UNK
     Route: 065

REACTIONS (2)
  - Myalgia [Recovered/Resolved]
  - Neuralgia [Recovered/Resolved]

NARRATIVE: CASE EVENT DATE: 201405
